FAERS Safety Report 21549018 (Version 2)
Quarter: 2022Q4

REPORT INFORMATION
  Report Type: Report from Study
  Country: US (occurrence: US)
  Receive Date: 20221103
  Receipt Date: 20221104
  Transmission Date: 20230113
  Serious: Yes (Hospitalization)
  Sender: FDA-Public Use
  Company Number: US-JNJFOC-20221056885

PATIENT
  Age: 14 Year
  Sex: Female
  Weight: 45.400 kg

DRUGS (7)
  1. INFLIXIMAB [Suspect]
     Active Substance: INFLIXIMAB
     Indication: Inflammatory bowel disease
     Route: 041
     Dates: start: 2005, end: 20090306
  2. USTEKINUMAB [Concomitant]
     Active Substance: USTEKINUMAB
  3. VITAMIN D3 [Concomitant]
     Active Substance: CHOLECALCIFEROL
  4. OMEPRAZOLE [Concomitant]
     Active Substance: OMEPRAZOLE
  5. OLOPATADINE [Concomitant]
     Active Substance: OLOPATADINE
  6. VITAMINS [Concomitant]
     Active Substance: VITAMINS
  7. VITAMIN B12 [Concomitant]
     Active Substance: CYANOCOBALAMIN

REACTIONS (1)
  - Intestinal perforation [Recovered/Resolved]

NARRATIVE: CASE EVENT DATE: 20220803
